FAERS Safety Report 25524368 (Version 9)
Quarter: 2025Q4

REPORT INFORMATION
  Report Type: Spontaneous
  Country: US (occurrence: US)
  Receive Date: 20250707
  Receipt Date: 20251216
  Transmission Date: 20260117
  Serious: No
  Sender: BLUEPRINT MEDICINES
  Company Number: US-Blueprint Medicines Corporation-2025-AER-01456

PATIENT
  Age: 35 Year
  Sex: Female

DRUGS (10)
  1. AYVAKIT [Suspect]
     Active Substance: AVAPRITINIB
     Indication: Mast cell activation syndrome
     Route: 065
     Dates: start: 20250630
  2. AYVAKIT [Suspect]
     Active Substance: AVAPRITINIB
     Indication: Systemic mastocytosis
     Route: 065
     Dates: start: 20250630
  3. AYVAKIT [Suspect]
     Active Substance: AVAPRITINIB
     Route: 065
     Dates: start: 202506
  4. AYVAKIT [Suspect]
     Active Substance: AVAPRITINIB
     Route: 065
     Dates: start: 20250630
  5. SINGULAIR [Suspect]
     Active Substance: MONTELUKAST SODIUM
     Indication: Product used for unknown indication
     Route: 065
  6. MIRALAX [Concomitant]
     Active Substance: POLYETHYLENE GLYCOL 3350
     Indication: Product used for unknown indication
     Route: 065
  7. ELECTROLYTES NOS [Concomitant]
     Active Substance: ELECTROLYTES NOS
     Indication: Product used for unknown indication
     Route: 065
  8. MINERALS [Concomitant]
     Active Substance: MINERALS
     Indication: Product used for unknown indication
     Route: 065
  9. CROMOLYN [Concomitant]
     Active Substance: CROMOLYN
     Indication: Product used for unknown indication
     Route: 065
  10. GLUTATHIONE [Concomitant]
     Active Substance: GLUTATHIONE
     Indication: Product used for unknown indication
     Route: 065

REACTIONS (36)
  - Constipation [Unknown]
  - Abnormal faeces [Unknown]
  - Fatigue [Not Recovered/Not Resolved]
  - Nausea [Unknown]
  - Dyspepsia [Unknown]
  - Myalgia [Unknown]
  - Arthralgia [Unknown]
  - Abdominal pain upper [Unknown]
  - Fluid retention [Not Recovered/Not Resolved]
  - Feeling abnormal [Unknown]
  - Autonomic nervous system imbalance [Unknown]
  - COVID-19 [Unknown]
  - Dizziness postural [Unknown]
  - Presyncope [Not Recovered/Not Resolved]
  - Papule [Unknown]
  - Rash pruritic [Unknown]
  - Inflammation [Unknown]
  - Feeling hot [Unknown]
  - Rash erythematous [Unknown]
  - Petechiae [Recovering/Resolving]
  - Anxiety [Unknown]
  - Insomnia [Unknown]
  - Influenza like illness [Unknown]
  - Flushing [Unknown]
  - Condition aggravated [Not Recovered/Not Resolved]
  - Aspartate aminotransferase abnormal [Unknown]
  - Alanine aminotransferase increased [Unknown]
  - Blood creatinine increased [Unknown]
  - Mania [Unknown]
  - Alopecia [Not Recovered/Not Resolved]
  - Brain fog [Not Recovered/Not Resolved]
  - Postural orthostatic tachycardia syndrome [Not Recovered/Not Resolved]
  - Bone pain [Not Recovered/Not Resolved]
  - Gastrointestinal disorder [Unknown]
  - Borrelia test positive [Unknown]
  - Epstein-Barr virus antibody positive [Unknown]

NARRATIVE: CASE EVENT DATE: 20250701
